FAERS Safety Report 26154811 (Version 1)
Quarter: 2025Q4

REPORT INFORMATION
  Report Type: Report from Study
  Country: EU (occurrence: EU)
  Receive Date: 20251215
  Receipt Date: 20251215
  Transmission Date: 20260117
  Serious: Yes (Disabling, Other)
  Sender: MERCK KGAA
  Company Number: EU-Merck Healthcare KGaA-2025061459

PATIENT
  Age: 60 Year
  Sex: Female

DRUGS (4)
  1. REBIF [Suspect]
     Active Substance: INTERFERON BETA-1A
     Indication: Multiple sclerosis
     Dates: start: 201708, end: 202510
  2. REBIF [Suspect]
     Active Substance: INTERFERON BETA-1A
  3. BACLOFEN [Concomitant]
     Active Substance: BACLOFEN
     Indication: Product used for unknown indication
     Dosage: 2X5MG, 1X12.5MG
  4. BACLOFEN [Concomitant]
     Active Substance: BACLOFEN
     Dosage: 2X5MG, 1X12.5MG

REACTIONS (3)
  - Deafness [Not Recovered/Not Resolved]
  - Multiple sclerosis relapse [Not Recovered/Not Resolved]
  - Herpes zoster [Unknown]

NARRATIVE: CASE EVENT DATE: 20250401
